FAERS Safety Report 11076445 (Version 1)
Quarter: 2015Q2

REPORT INFORMATION
  Report Type: Spontaneous
  Country: US (occurrence: US)
  Receive Date: 20150429
  Receipt Date: 20150429
  Transmission Date: 20150821
  Serious: Yes (Death, Other)
  Sender: FDA-Public Use
  Company Number: US-GLAXOSMITHKLINE-US2015GSK056905

PATIENT
  Age: 31 Year
  Sex: Female

DRUGS (8)
  1. ATIVAN [Concomitant]
     Active Substance: LORAZEPAM
  2. VOTRIENT [Suspect]
     Active Substance: PAZOPANIB HYDROCHLORIDE
     Indication: RETROPERITONEAL CANCER
     Dosage: 800 MG, QD
     Route: 048
     Dates: start: 20140919
  3. LYRICA [Concomitant]
     Active Substance: PREGABALIN
  4. TRAMADOL [Concomitant]
     Active Substance: TRAMADOL
  5. ERGOCALCIFEROL. [Concomitant]
     Active Substance: ERGOCALCIFEROL
  6. ZOFRAN [Concomitant]
     Active Substance: ONDANSETRON HYDROCHLORIDE
  7. OMEPRAZOLE. [Concomitant]
     Active Substance: OMEPRAZOLE
  8. LEXAPRO [Concomitant]
     Active Substance: ESCITALOPRAM OXALATE

REACTIONS (1)
  - Death [Fatal]

NARRATIVE: CASE EVENT DATE: 20150421
